FAERS Safety Report 8307810-9 (Version None)
Quarter: 2012Q2

REPORT INFORMATION
  Report Type: 
  Country: None (occurrence: None)
  Receive Date: 20120424
  Receipt Date: 20120411
  Transmission Date: 20120825
  Serious: Yes (Life-Threatening)
  Sender: FDA-Public Use
  Company Number: FR-FRI-1000029998

PATIENT
  Sex: Female

DRUGS (1)
  1. DINOPROSTONE [Suspect]
     Indication: LABOUR INDUCTION
     Route: 067
     Dates: start: 20111104, end: 20111104

REACTIONS (3)
  - UTERINE RUPTURE [None]
  - VOMITING [None]
  - PELVIC PAIN [None]
